FAERS Safety Report 17516375 (Version 2)
Quarter: 2020Q1

REPORT INFORMATION
  Report Type: Spontaneous
  Country: US (occurrence: US)
  Receive Date: 20200309
  Receipt Date: 20200325
  Transmission Date: 20200409
  Serious: No
  Sender: FDA-Public Use
  Company Number: US-PFIZER INC-2020093806

PATIENT
  Age: 53 Year
  Sex: Female
  Weight: 51.71 kg

DRUGS (2)
  1. DUAVEE [Suspect]
     Active Substance: BAZEDOXIFENE ACETATE\ESTROGENS, CONJUGATED
     Indication: HOT FLUSH
     Dosage: UNK, 1X/DAY (BAZEDOXIFENE ACETATE: 20MG/CONJUGATED ESTROGENS: 0.45 MG)
     Route: 048
     Dates: start: 2019
  2. DUAVEE [Suspect]
     Active Substance: BAZEDOXIFENE ACETATE\ESTROGENS, CONJUGATED
     Indication: MENOPAUSE
     Dosage: UNK, DAILY  (BAZEDOXIFENE ACETATE: 20MG/CONJUGATED ESTROGENS: 0.45 MG)
     Route: 048

REACTIONS (1)
  - Thoracic outlet syndrome [Unknown]
